FAERS Safety Report 20576432 (Version 1)
Quarter: 2022Q1

REPORT INFORMATION
  Report Type: Spontaneous
  Country: CN (occurrence: None)
  Receive Date: 20220310
  Receipt Date: 20220310
  Transmission Date: 20220423
  Serious: Yes (Other)
  Sender: FDA-Public Use
  Company Number: 2022A100437

PATIENT
  Age: 30681 Day
  Sex: Male
  Weight: 72 kg

DRUGS (2)
  1. BUDESONIDE [Suspect]
     Active Substance: BUDESONIDE
     Indication: Cor pulmonale
     Route: 055
     Dates: start: 20220102, end: 20220106
  2. SODIUM CHLORIDE [Concomitant]
     Active Substance: SODIUM CHLORIDE
     Route: 065

REACTIONS (1)
  - Respiration abnormal [Recovering/Resolving]

NARRATIVE: CASE EVENT DATE: 20220106
